FAERS Safety Report 9414097 (Version 1)
Quarter: 2013Q3

REPORT INFORMATION
  Report Type: Spontaneous
  Country: None (occurrence: None)
  Receive Date: 20130709
  Receipt Date: 20130709
  Transmission Date: 20140515
  Serious: Yes (Other)
  Sender: FDA-Public Use
  Company Number: AUR-APL-2009-00041

PATIENT
  Age: 56 Year
  Sex: Male

DRUGS (2)
  1. FLUOXETINE (FLUOXETINE) (FLUOXETINE) [Suspect]
     Indication: GENERALISED ANXIETY DISORDER
  2. FLUOXETINE (FLUOXETINE) (FLUOXETINE) [Suspect]
     Indication: MAJOR DEPRESSION

REACTIONS (5)
  - Trismus [None]
  - Muscle disorder [None]
  - Impaired work ability [None]
  - Mastication disorder [None]
  - Pain [None]
